FAERS Safety Report 19477930 (Version 2)
Quarter: 2021Q3

REPORT INFORMATION
  Report Type: Report from Study
  Country: US (occurrence: US)
  Receive Date: 20210630
  Receipt Date: 20210716
  Transmission Date: 20211014
  Serious: Yes (Other)
  Sender: FDA-Public Use
  Company Number: US-BIOVITRUM-2021US4999

PATIENT
  Age: 9 Year
  Sex: Female

DRUGS (2)
  1. KINERET [Suspect]
     Active Substance: ANAKINRA
     Indication: STILL^S DISEASE
     Dosage: 100MG/0.67ML
     Route: 058
     Dates: start: 202012
  2. KINERET [Suspect]
     Active Substance: ANAKINRA
     Dosage: 100MG/0.67ML
     Route: 058
     Dates: start: 20201208, end: 20210712

REACTIONS (6)
  - Attention deficit hyperactivity disorder [Unknown]
  - Condition aggravated [Unknown]
  - Juvenile idiopathic arthritis [Unknown]
  - Arthralgia [Unknown]
  - Pain [Unknown]
  - Off label use [Recovered/Resolved]

NARRATIVE: CASE EVENT DATE: 20201208
